FAERS Safety Report 8832371 (Version 1)
Quarter: 2012Q4

REPORT INFORMATION
  Report Type: Report from Study
  Country: GB (occurrence: GB)
  Receive Date: 20121009
  Receipt Date: 20121009
  Transmission Date: 20130627
  Serious: Yes (Hospitalization)
  Sender: FDA-Public Use
  Company Number: GB-TEVA-362760ISR

PATIENT
  Age: 41 Year

DRUGS (2)
  1. CEP-701 [Suspect]
     Dosage: Lestaurtinib (CEP-701) or Placebo
     Dates: start: 20120822, end: 20120924
  2. ARA-C [Suspect]
     Dates: start: 20120822, end: 20120924

REACTIONS (1)
  - Febrile neutropenia [Not Recovered/Not Resolved]
